FAERS Safety Report 7578819-8 (Version None)
Quarter: 2011Q2

REPORT INFORMATION
  Report Type: 
  Country: None (occurrence: None)
  Receive Date: 20110628
  Receipt Date: 20110620
  Transmission Date: 20111010
  Serious: Yes (Other)
  Sender: FDA-Public Use
  Company Number: US-PURDUE-USA-2011-0068430

PATIENT
  Sex: Female
  Weight: 106.12 kg

DRUGS (18)
  1. BUTRANS [Suspect]
     Indication: ANALGESIC THERAPY
     Dosage: 20 MCG, Q1H
     Route: 062
     Dates: start: 20110208, end: 20110510
  2. CYMBALTA [Concomitant]
     Indication: PRODUCT USED FOR UNKNOWN INDICATION
     Dosage: 60 MG, DAILY
  3. RECLAST [Concomitant]
     Indication: OSTEITIS DEFORMANS
     Dosage: 5MG/100ML SOLUTION, ANNUAL
     Route: 042
  4. SINEMET [Concomitant]
     Indication: PRODUCT USED FOR UNKNOWN INDICATION
     Dosage: 1 25-100MG TABLET, QID
  5. FUROSEMIDE [Concomitant]
     Indication: OEDEMA PERIPHERAL
     Dosage: 80 MG, DAILY
     Route: 048
  6. MIRALAX [Concomitant]
     Indication: CONSTIPATION
     Dosage: 1 DF, PRN
     Route: 048
  7. NAPROXEN [Concomitant]
     Indication: PAIN
     Dosage: 500 MG, BID
     Route: 060
  8. CALTRATE D PLUS MINERALS [Concomitant]
     Indication: PRODUCT USED FOR UNKNOWN INDICATION
     Dosage: 1 TABLET, TID
     Route: 048
  9. MULTI-VITAMINS [Concomitant]
     Indication: PRODUCT USED FOR UNKNOWN INDICATION
     Dosage: 1 TABLET, DAILY
     Route: 048
  10. MIRAPEX [Concomitant]
     Indication: PRODUCT USED FOR UNKNOWN INDICATION
     Dosage: 0.5 MG, QID
     Route: 048
  11. PROTONIX [Concomitant]
     Indication: PRODUCT USED FOR UNKNOWN INDICATION
     Dosage: 40 MG, BID
  12. ZANAFLEX [Concomitant]
     Indication: PRODUCT USED FOR UNKNOWN INDICATION
     Dosage: 2 MG, SIX TIMES DAILY
     Route: 048
  13. REQUIP [Concomitant]
     Indication: PRODUCT USED FOR UNKNOWN INDICATION
     Dosage: 4 MG, TID
     Route: 048
  14. COMTAN [Concomitant]
     Indication: PRODUCT USED FOR UNKNOWN INDICATION
     Dosage: 200 MG, QID
     Route: 048
  15. TRIAMCINOLONE ACETONIDE [Concomitant]
     Indication: ORAL DISORDER
     Dosage: UNK, BID
     Route: 061
  16. ABILIFY [Concomitant]
     Indication: TARDIVE DYSKINESIA
     Dosage: 5 MG, DAILY
     Route: 048
  17. FERROUS SULFATE TAB [Concomitant]
     Indication: PRODUCT USED FOR UNKNOWN INDICATION
     Dosage: 1 325 (65FE) MG TABLET, DAILY
     Route: 048
  18. AZILECT [Concomitant]
     Indication: PRODUCT USED FOR UNKNOWN INDICATION
     Dosage: 0.5 MG, DAILY
     Route: 048

REACTIONS (4)
  - APPLICATION SITE DERMATITIS [None]
  - RASH PRURITIC [None]
  - SKIN ULCER [None]
  - APPLICATION SITE ULCER [None]
